FAERS Safety Report 20046330 (Version 2)
Quarter: 2022Q2

REPORT INFORMATION
  Report Type: Spontaneous
  Country: ES (occurrence: ES)
  Receive Date: 20211109
  Receipt Date: 20220610
  Transmission Date: 20220720
  Serious: Yes (Life-Threatening)
  Sender: FDA-Public Use
  Company Number: ES-AEMPS-1034170

PATIENT
  Age: 78 Year
  Sex: Female

DRUGS (11)
  1. AZITHROMYCIN [Suspect]
     Active Substance: AZITHROMYCIN
     Indication: Infection
     Dosage: COMP C/24 H ()
     Route: 048
     Dates: start: 20211004
  2. PROLIA 60 mg SOLUCION INYECTABLE EN JERINGA PRECARGADA, 1 jeringa p... [Concomitant]
     Indication: Osteoporosis
     Dosage: 60.0 MG
     Route: 058
     Dates: start: 20150911
  3. FUROSEMIDA CINFA 40 mg COMPRIMIDOS EFG, 30 comprimidos [Concomitant]
     Indication: Atrial fibrillation
     Dosage: 40.0 MG A-DE
     Route: 048
     Dates: start: 20201218
  4. TRELEGY ELLIPTA 92 MICROGRAMOS/55 MICROGRAMOS/22 MICROGRAMOS POLVO ... [Concomitant]
     Indication: Asthma
     Dosage: 1.0 PUFF C/24 H ()
     Route: 050
     Dates: start: 20210515
  5. EUTIROX 125 microgramos COMPRIMIDOS , 100 comprimidos [Concomitant]
     Indication: Hypothyroidism
     Dosage: 125.0 MCG A-DE ()
     Route: 048
     Dates: start: 20200904
  6. PLAVIX 75 MG COMPRIMIDOS RECUBIERTOS CON PELICULA, 84 comprimidos [Concomitant]
     Indication: Atrial fibrillation
     Dosage: 75.0 MG DE ()
     Route: 048
     Dates: start: 20210626
  7. LORAZEPAM CINFA 1 mg COMPRIMIDOS EFG, 50 comprimidos [Concomitant]
     Indication: Insomnia
     Dosage: 1.0 MG C/24 H NOC ()
     Route: 048
     Dates: start: 20150723
  8. PANTOPRAZOL CINFA 40 mg COMPRIMIDOS GASTRORRESISTENTES EFG,56 compr... [Concomitant]
     Indication: Dyspepsia
     Dosage: 40.0 MG DE ()
     Route: 048
     Dates: start: 20200904
  9. CHOLECALCIFEROL [Concomitant]
     Active Substance: CHOLECALCIFEROL
     Indication: Vitamin D deficiency
     Dosage: 25000.0 UI C/30 DAYS
     Route: 048
     Dates: start: 20210218
  10. FELIBEN 52,5 microgramos/HORA PARCHES TRANSDERMICOS. , 10 parches [Concomitant]
     Indication: Spinal osteoarthritis
     Dosage: 1.0 PARCHE C/72 HOURS
     Route: 065
     Dates: start: 20210226
  11. ATENOLOL CINFA 50 mg COMPRIMIDOS EFG , 60 comprimidos [Concomitant]
     Indication: Spinal osteoarthritis
     Dosage: MG IRREGULAR ()
     Route: 048
     Dates: start: 20200904

REACTIONS (1)
  - Anaphylactic shock [Recovered/Resolved with Sequelae]

NARRATIVE: CASE EVENT DATE: 20211004
